FAERS Safety Report 19673562 (Version 1)
Quarter: 2021Q3

REPORT INFORMATION
  Report Type: Spontaneous
  Country: US (occurrence: US)
  Receive Date: 20210806
  Receipt Date: 20210806
  Transmission Date: 20211014
  Serious: No
  Sender: FDA-Public Use
  Company Number: None

PATIENT
  Age: 69 Year
  Sex: Male
  Weight: 81.9 kg

DRUGS (8)
  1. ASPERCREME WITH LIDOCAINE [Suspect]
     Active Substance: LIDOCAINE
     Indication: PAIN
     Dosage: ?          QUANTITY:1 ROLLON;?
     Route: 061
  2. CALCITRIOL. [Concomitant]
     Active Substance: CALCITRIOL
  3. ASPERCREME WITH LIDOCAINE [Suspect]
     Active Substance: LIDOCAINE
     Indication: HERPES ZOSTER
     Dosage: ?          QUANTITY:1 ROLLON;?
     Route: 061
  4. LOVASTATIN. [Concomitant]
     Active Substance: LOVASTATIN
  5. ASPIRIN 81 MG [Concomitant]
     Active Substance: ASPIRIN
  6. LISINOPRIL. [Concomitant]
     Active Substance: LISINOPRIL
  7. ALLOPURINAL [Concomitant]
     Active Substance: ALLOPURINOL
  8. OMEPRAZOLE. [Concomitant]
     Active Substance: OMEPRAZOLE

REACTIONS (4)
  - Pain [None]
  - Sensitive skin [None]
  - Rash erythematous [None]
  - Burning sensation [None]

NARRATIVE: CASE EVENT DATE: 20210804
